FAERS Safety Report 21252749 (Version 3)
Quarter: 2023Q4

REPORT INFORMATION
  Report Type: Report from Study
  Country: CA (occurrence: CA)
  Receive Date: 20220825
  Receipt Date: 20231218
  Transmission Date: 20240110
  Serious: Yes (Other)
  Sender: FDA-Public Use
  Company Number: CA-JNJFOC-20220838821

PATIENT
  Age: 37 Year
  Sex: Female
  Weight: 80 kg

DRUGS (1)
  1. REMICADE [Suspect]
     Active Substance: INFLIXIMAB
     Indication: Crohn^s disease
     Dosage: EXPIRY DATE: 31-JUL-2025
     Route: 041
     Dates: start: 20120531, end: 20231211

REACTIONS (4)
  - Ileostomy [Unknown]
  - Herpes zoster [Recovered/Resolved]
  - Influenza [Unknown]
  - Rash [Unknown]

NARRATIVE: CASE EVENT DATE: 20220601
